FAERS Safety Report 4811131-6 (Version None)
Quarter: 2005Q4

REPORT INFORMATION
  Report Type: 
  Country: None (occurrence: None)
  Receive Date: 20051027
  Receipt Date: 20051025
  Transmission Date: 20060501
  Serious: Yes (Hospitalization, Other)
  Sender: FDA-Public Use
  Company Number: US-GLAXOSMITHKLINE-A0579584A

PATIENT
  Sex: Male

DRUGS (2)
  1. PAXIL CR [Suspect]
     Indication: DRUG USE FOR UNKNOWN INDICATION
     Dosage: 25MG UNKNOWN
     Route: 065
  2. PAROXETINE HCL [Suspect]
     Indication: DRUG USE FOR UNKNOWN INDICATION
     Dosage: 40MG UNKNOWN
     Route: 065

REACTIONS (3)
  - ADVERSE EVENT [None]
  - DEHYDRATION [None]
  - DIZZINESS [None]
